FAERS Safety Report 5677458-3 (Version None)
Quarter: 2008Q1

REPORT INFORMATION
  Report Type: 
  Country: None (occurrence: None)
  Receive Date: 20080324
  Receipt Date: 20080318
  Transmission Date: 20080703
  Serious: Yes (Life-Threatening, Hospitalization)
  Sender: FDA-Public Use
  Company Number: US-GILEAD-2008-0015592

PATIENT
  Sex: Female

DRUGS (12)
  1. LETAIRIS [Suspect]
     Indication: PULMONARY HYPERTENSION
     Route: 048
     Dates: start: 20080220, end: 20080226
  2. WARFARIN SODIUM [Concomitant]
     Route: 048
  3. CARDIZEM LA [Concomitant]
     Indication: ATRIAL FIBRILLATION
     Route: 048
  4. FLECAINIDE ACETATE [Concomitant]
     Indication: ATRIAL FIBRILLATION
  5. AVALIDE [Concomitant]
     Route: 048
  6. PROPANOLOL HCL [Concomitant]
     Indication: ATRIAL FIBRILLATION
     Route: 048
  7. FUROSEMIDE [Concomitant]
     Indication: OEDEMA
     Route: 048
  8. KLOR-CON [Concomitant]
     Route: 048
  9. HYDROXYUREA [Concomitant]
     Indication: THROMBOCYTHAEMIA
     Route: 048
  10. ALDACTONE [Concomitant]
     Indication: OEDEMA
     Route: 048
  11. ALPRAZOLAM [Concomitant]
     Indication: ANXIETY
     Route: 048
  12. PAXIL [Concomitant]
     Indication: ANXIETY
     Route: 048

REACTIONS (3)
  - DIZZINESS [None]
  - HYPOTENSION [None]
  - SYNCOPE [None]
